FAERS Safety Report 7194343-9 (Version None)
Quarter: 2010Q4

REPORT INFORMATION
  Report Type: 
  Country: None (occurrence: None)
  Receive Date: 20101223
  Receipt Date: 20101213
  Transmission Date: 20110411
  Serious: Yes (Life-Threatening, Hospitalization, Other)
  Sender: FDA-Public Use
  Company Number: US-ELI_LILLY_AND_COMPANY-US201012003530

PATIENT

DRUGS (4)
  1. CYMBALTA [Suspect]
     Dosage: 90 MG, EACH EVENING
     Route: 064
     Dates: end: 20100527
  2. CYMBALTA [Suspect]
     Dosage: 90 MG, EACH EVENING
     Route: 063
  3. PRENATAL [Concomitant]
     Route: 064
  4. BENADRYL [Concomitant]
     Dosage: UNK, OTHER
     Route: 064
     Dates: start: 20091130

REACTIONS (4)
  - DRUG EXPOSURE DURING PREGNANCY [None]
  - DRUG EXPOSURE VIA BREAST MILK [None]
  - ENDOTRACHEAL INTUBATION [None]
  - PREMATURE BABY [None]
